FAERS Safety Report 9173321 (Version 1)
Quarter: 2013Q1

REPORT INFORMATION
  Report Type: Spontaneous
  Country: US (occurrence: None)
  Receive Date: 20130315
  Receipt Date: 20130315
  Transmission Date: 20140127
  Serious: Yes (Other)
  Sender: FDA-Public Use
  Company Number: ADR-2013UNK042

PATIENT
  Sex: 0

DRUGS (1)
  1. EFAVIRENZ TABS/ (UNK MFR) [Suspect]
     Indication: ACQUIRED IMMUNODEFICIENCY SYNDROME
     Route: 048

REACTIONS (1)
  - Neuropsychiatric syndrome [None]
